FAERS Safety Report 20299315 (Version 1)
Quarter: 2022Q1

REPORT INFORMATION
  Report Type: Spontaneous
  Country: US (occurrence: US)
  Receive Date: 20220105
  Receipt Date: 20220105
  Transmission Date: 20220423
  Serious: Yes (Other)
  Sender: FDA-Public Use
  Company Number: US-INCYTE CORPORATION-2021IN009862

PATIENT

DRUGS (2)
  1. JAKAFI [Suspect]
     Active Substance: RUXOLITINIB
     Indication: Polycythaemia vera
     Dosage: 5 MILLIGRAM, BID
     Route: 048
     Dates: start: 20210902
  2. JAKAFI [Suspect]
     Active Substance: RUXOLITINIB
     Dosage: 5 MILLIGRAM, BID
     Route: 048
     Dates: start: 20210901

REACTIONS (7)
  - Inguinal hernia [Recovered/Resolved]
  - Fatigue [Unknown]
  - Asthenia [Unknown]
  - Platelet count increased [Unknown]
  - Impaired healing [Unknown]
  - Product availability issue [Unknown]
  - Product dose omission in error [Unknown]
